FAERS Safety Report 14397507 (Version 1)
Quarter: 2018Q1

REPORT INFORMATION
  Report Type: Spontaneous
  Country: US (occurrence: US)
  Receive Date: 20180116
  Receipt Date: 20180116
  Transmission Date: 20180509
  Serious: No
  Sender: FDA-Public Use
  Company Number: US-ALLERGAN-1729751US

PATIENT
  Age: 46 Year
  Sex: Female

DRUGS (2)
  1. BOTOX COSMETIC [Suspect]
     Active Substance: ONABOTULINUMTOXINA
     Indication: SKIN WRINKLING
     Dosage: 20 UNITS, SINGLE
     Route: 030
     Dates: start: 20170620, end: 20170620
  2. BOTOX COSMETIC [Suspect]
     Active Substance: ONABOTULINUMTOXINA
     Indication: SKIN WRINKLING

REACTIONS (8)
  - Injection site mass [Recovered/Resolved]
  - Injection site pain [Recovered/Resolved]
  - Nausea [Recovered/Resolved]
  - Injection site swelling [Recovered/Resolved]
  - Headache [Recovered/Resolved]
  - Angioedema [Recovered/Resolved]
  - Urticaria [Recovered/Resolved]
  - Drug ineffective [Unknown]

NARRATIVE: CASE EVENT DATE: 20170620
